FAERS Safety Report 9833428 (Version 2)
Quarter: 2014Q2

REPORT INFORMATION
  Report Type: Report from Study
  Country: GB (occurrence: GB)
  Receive Date: 20140121
  Receipt Date: 20140428
  Transmission Date: 20141212
  Serious: Yes (Hospitalization)
  Sender: FDA-Public Use
  Company Number: GB-ROCHE-1336551

PATIENT
  Age: 82 Year
  Sex: Female

DRUGS (2)
  1. RANIBIZUMAB [Suspect]
     Indication: PRODUCT USED FOR UNKNOWN INDICATION
     Route: 050
     Dates: start: 20121207
  2. RANIBIZUMAB [Suspect]
     Route: 050
     Dates: start: 20131213

REACTIONS (2)
  - Chest pain [Unknown]
  - Accident [Unknown]
